FAERS Safety Report 24098360 (Version 1)
Quarter: 2024Q3

REPORT INFORMATION
  Report Type: Spontaneous
  Country: GB (occurrence: GB)
  Receive Date: 20240716
  Receipt Date: 20240716
  Transmission Date: 20241017
  Serious: Yes (Other)
  Sender: TEVA
  Company Number: None

PATIENT
  Age: 20 Year
  Sex: Female

DRUGS (1)
  1. CLARITHROMYCIN [Suspect]
     Active Substance: CLARITHROMYCIN
     Dosage: 500MG TWICE A DAY
     Route: 065

REACTIONS (3)
  - Chills [Not Recovered/Not Resolved]
  - Mood swings [Not Recovered/Not Resolved]
  - Suicidal ideation [Not Recovered/Not Resolved]
